FAERS Safety Report 7057391-5 (Version None)
Quarter: 2010Q4

REPORT INFORMATION
  Report Type: 
  Country: None (occurrence: None)
  Receive Date: 20101022
  Receipt Date: 20101014
  Transmission Date: 20110411
  Serious: Yes (Hospitalization, Other)
  Sender: FDA-Public Use
  Company Number: US-JNJFOC-20100602983

PATIENT
  Sex: Male

DRUGS (8)
  1. LEVAQUIN [Suspect]
     Indication: UPPER RESPIRATORY TRACT INFECTION
     Route: 048
  2. PREDNISONE [Suspect]
     Indication: BRONCHITIS
  3. VITAMIN TAB [Concomitant]
  4. CLINDAMYCIN [Concomitant]
     Indication: INFECTION
  5. CELEBREX [Concomitant]
     Indication: ARTHRITIS
  6. VASOTEC [Concomitant]
     Indication: HYPERTENSION
  7. OXYCODONE [Concomitant]
     Indication: PAIN
  8. LIPITOR [Concomitant]
     Indication: BLOOD CHOLESTEROL INCREASED

REACTIONS (5)
  - FOOT DEFORMITY [None]
  - NEUROPATHY PERIPHERAL [None]
  - ROTATOR CUFF SYNDROME [None]
  - TARSAL TUNNEL SYNDROME [None]
  - TENDON RUPTURE [None]
